FAERS Safety Report 9855439 (Version 1)
Quarter: 2014Q1

REPORT INFORMATION
  Report Type: Spontaneous
  Country: US (occurrence: None)
  Receive Date: 20140129
  Receipt Date: 20140129
  Transmission Date: 20141002
  Serious: Yes (Other)
  Sender: FDA-Public Use
  Company Number: None

PATIENT
  Age: 14 Year
  Sex: Male
  Weight: 62.14 kg

DRUGS (5)
  1. LATUDA [Suspect]
     Indication: BIPOLAR DISORDER
     Dosage: 0.5 TAB, QHS/BEDTIME, ORAL
     Route: 048
     Dates: start: 20131115, end: 20140110
  2. CLONIDINE [Concomitant]
  3. INOSITOL [Concomitant]
  4. AMANTADINE [Concomitant]
  5. ABILIFY [Concomitant]

REACTIONS (2)
  - Weight increased [None]
  - Blood alkaline phosphatase abnormal [None]
